FAERS Safety Report 19933353 (Version 1)
Quarter: 2021Q4

REPORT INFORMATION
  Report Type: Spontaneous
  Country: US (occurrence: US)
  Receive Date: 20211008
  Receipt Date: 20211008
  Transmission Date: 20220303
  Serious: Yes (Death)
  Sender: FDA-Public Use
  Company Number: US-MALLINCKRODT PHARMACEUTICALS-T202104482

PATIENT
  Age: 4 Month

DRUGS (1)
  1. INOMAX [Suspect]
     Active Substance: NITRIC OXIDE
     Indication: Cardio-respiratory arrest
     Dosage: 20PPM (INHALATION)
     Route: 055
     Dates: start: 20210927, end: 20210928

REACTIONS (3)
  - Cardio-respiratory arrest [Fatal]
  - Product use in unapproved indication [Unknown]
  - Product use issue [Unknown]

NARRATIVE: CASE EVENT DATE: 20210927
